FAERS Safety Report 9319621 (Version 1)
Quarter: 2013Q2

REPORT INFORMATION
  Report Type: Spontaneous
  Country: US (occurrence: US)
  Receive Date: 20130530
  Receipt Date: 20130530
  Transmission Date: 20140414
  Serious: Yes (Hospitalization)
  Sender: FDA-Public Use
  Company Number: US-GLAXOSMITHKLINE-A1013859A

PATIENT
  Sex: Female

DRUGS (2)
  1. FLOLAN [Suspect]
     Indication: COR PULMONALE CHRONIC
     Dosage: 49NGKM CONTINUOUS
     Route: 042
     Dates: start: 19990809
  2. LASIX [Concomitant]

REACTIONS (7)
  - Flushing [Unknown]
  - Oral surgery [Recovered/Resolved]
  - Balance disorder [Unknown]
  - Foot fracture [Unknown]
  - Thyroid neoplasm [Unknown]
  - Biopsy thyroid gland [Unknown]
  - Abdominal pain [Unknown]
